FAERS Safety Report 25657175 (Version 1)
Quarter: 2025Q3

REPORT INFORMATION
  Report Type: Spontaneous
  Country: CN (occurrence: CN)
  Receive Date: 20250808
  Receipt Date: 20250808
  Transmission Date: 20251021
  Serious: Yes (Other)
  Sender: ALEXION PHARMACEUTICALS
  Company Number: CN-ASTRAZENECA-202508CHN002876CN

PATIENT
  Age: 59 Year
  Sex: Male
  Weight: 85 kg

DRUGS (1)
  1. DAPAGLIFLOZIN [Suspect]
     Active Substance: DAPAGLIFLOZIN
     Indication: Blood glucose abnormal
     Dosage: 5 MILLIGRAM, QD
     Dates: start: 20250718, end: 20250720

REACTIONS (3)
  - Dysuria [Recovering/Resolving]
  - Pollakiuria [Recovering/Resolving]
  - Micturition urgency [Recovering/Resolving]

NARRATIVE: CASE EVENT DATE: 20250720
